FAERS Safety Report 20407878 (Version 3)
Quarter: 2022Q1

REPORT INFORMATION
  Report Type: Report from Study
  Country: US (occurrence: US)
  Receive Date: 20220201
  Receipt Date: 20220321
  Transmission Date: 20220424
  Serious: No
  Sender: FDA-Public Use
  Company Number: US-BIOVITRUM-2022US00752

PATIENT
  Age: 8 Year
  Sex: Male

DRUGS (5)
  1. KINERET [Suspect]
     Active Substance: ANAKINRA
     Indication: Osteomyelitis chronic
     Route: 058
     Dates: start: 20220112
  2. KINERET [Suspect]
     Active Substance: ANAKINRA
     Indication: Immune system disorder
     Route: 058
     Dates: start: 20220112, end: 20220119
  3. KINERET [Suspect]
     Active Substance: ANAKINRA
     Indication: Cryopyrin associated periodic syndrome
     Route: 058
     Dates: start: 20190418
  4. REMICADE [Concomitant]
     Active Substance: INFLIXIMAB
     Indication: Product used for unknown indication
  5. HUMAN IMMUNOGLOBULIN G [Concomitant]
     Active Substance: HUMAN IMMUNOGLOBULIN G
     Indication: Product used for unknown indication

REACTIONS (5)
  - COVID-19 [Unknown]
  - Pyrexia [Unknown]
  - Injection site pain [Unknown]
  - Product dose omission issue [Unknown]
  - Off label use [Unknown]

NARRATIVE: CASE EVENT DATE: 20190418
